FAERS Safety Report 20089583 (Version 1)
Quarter: 2021Q4

REPORT INFORMATION
  Report Type: Spontaneous
  Country: US (occurrence: US)
  Receive Date: 20211119
  Receipt Date: 20211119
  Transmission Date: 20220303
  Serious: No
  Sender: FDA-Public Use
  Company Number: ALC2021US003135

PATIENT
  Sex: Female

DRUGS (1)
  1. MIOSTAT [Suspect]
     Active Substance: CARBACHOL
     Indication: Product used for unknown indication
     Dosage: UNK
     Route: 065
     Dates: start: 20210402

REACTIONS (2)
  - Post procedural infection [Unknown]
  - Liquid product physical issue [Unknown]
